FAERS Safety Report 12879847 (Version 1)
Quarter: 2016Q4

REPORT INFORMATION
  Report Type: Spontaneous
  Country: US (occurrence: US)
  Receive Date: 20161025
  Receipt Date: 20161025
  Transmission Date: 20170207
  Serious: No
  Sender: FDA-Public Use
  Company Number: US-DRREDDYS-DRL/USA/16/0080329

PATIENT
  Sex: Female
  Weight: 65.7 kg

DRUGS (2)
  1. RANITIDINE. [Suspect]
     Active Substance: RANITIDINE
     Indication: DYSPEPSIA
     Route: 065
     Dates: start: 20160412, end: 20160510
  2. RANITIDINE. [Suspect]
     Active Substance: RANITIDINE
     Indication: DYSPEPSIA
     Route: 065
     Dates: start: 20160426, end: 20160503

REACTIONS (2)
  - Drug ineffective [Unknown]
  - Product quality issue [Unknown]
